FAERS Safety Report 16184296 (Version 1)
Quarter: 2019Q2

REPORT INFORMATION
  Report Type: Spontaneous
  Country: PR (occurrence: PR)
  Receive Date: 20190411
  Receipt Date: 20190411
  Transmission Date: 20190711
  Serious: No
  Sender: FDA-Public Use
  Company Number: PR-PFIZER INC-2019148719

PATIENT
  Age: 5 Year
  Sex: Female
  Weight: 59.87 kg

DRUGS (1)
  1. EUCRISA [Suspect]
     Active Substance: CRISABOROLE
     Indication: DERMATITIS
     Dosage: SMALL DOSE ON AFFECTED AREA, USED ONLY TWO TIMES
     Dates: start: 20190331, end: 20190401

REACTIONS (2)
  - Application site pain [Recovered/Resolved]
  - Application site pruritus [Recovered/Resolved]

NARRATIVE: CASE EVENT DATE: 20190331
